FAERS Safety Report 14777036 (Version 1)
Quarter: 2018Q2

REPORT INFORMATION
  Report Type: Spontaneous
  Country: US (occurrence: US)
  Receive Date: 20180419
  Receipt Date: 20180419
  Transmission Date: 20180711
  Serious: Yes (Hospitalization, Other)
  Sender: FDA-Public Use
  Company Number: US-ZYDUS-019772

PATIENT
  Age: 56 Year
  Sex: Male

DRUGS (8)
  1. AMOXICILLIN/CLAVULANATE POTASSIUM [Suspect]
     Active Substance: AMOXICILLIN\CLAVULANATE POTASSIUM
     Indication: BACTERIAL PYELONEPHRITIS
     Route: 065
  2. PIPERACILLIN/TAZOBACTAM [Suspect]
     Active Substance: PIPERACILLIN SODIUM\TAZOBACTAM SODIUM
     Indication: BACTERIAL PYELONEPHRITIS
     Dosage: DAY -17 TO -14
     Route: 065
  3. CEFALEXIN [Suspect]
     Active Substance: CEPHALEXIN
     Indication: BACTERIAL PYELONEPHRITIS
     Dosage: DAY -26 TO -20 AND DAY -13
     Route: 065
  4. CEFEPIME [Concomitant]
     Active Substance: CEFEPIME HYDROCHLORIDE
     Indication: BACTERIAL PYELONEPHRITIS
     Dosage: DAY 0 TO +1
     Route: 065
  5. METRONIDAZOLE. [Suspect]
     Active Substance: METRONIDAZOLE
     Indication: BACTERIAL PYELONEPHRITIS
     Dosage: DAY -17 TO -14
     Route: 065
  6. CEFTRIAXONE. [Suspect]
     Active Substance: CEFTRIAXONE
     Indication: BACTERIAL PYELONEPHRITIS
     Dosage: DAYS -30 TO -27
     Route: 065
  7. CIPROFLOXACIN/CIPROFLOXACIN HYDROCHLORIDE/CIPROFLOXACIN LACTATE [Suspect]
     Active Substance: CIPROFLOXACIN
     Indication: BACTERIAL PYELONEPHRITIS
     Dosage: DAY -13 TO -9
     Route: 065
  8. VANCOMYCIN [Concomitant]
     Active Substance: VANCOMYCIN
     Indication: BACTERIAL PYELONEPHRITIS
     Dosage: DAY +1 TO +3
     Route: 065

REACTIONS (5)
  - Leukocytosis [Recovering/Resolving]
  - Hydronephrosis [Recovering/Resolving]
  - Mucormycosis [Recovering/Resolving]
  - Flank pain [Recovering/Resolving]
  - Sterile pyuria [Recovering/Resolving]
